FAERS Safety Report 17367911 (Version 3)
Quarter: 2020Q1

REPORT INFORMATION
  Report Type: Spontaneous
  Country: US (occurrence: US)
  Receive Date: 20200204
  Receipt Date: 20200227
  Transmission Date: 20200409
  Serious: Yes (Other)
  Sender: FDA-Public Use
  Company Number: US-AMERICAN REGENT INC-2020000244

PATIENT
  Sex: Female
  Weight: 61.22 kg

DRUGS (2)
  1. INJECTAFER [Suspect]
     Active Substance: FERRIC CARBOXYMALTOSE
     Indication: GASTROINTESTINAL HAEMORRHAGE
     Dosage: UNK UNK, SINGLE
     Route: 042
     Dates: start: 20191112, end: 20191112
  2. INJECTAFER [Suspect]
     Active Substance: FERRIC CARBOXYMALTOSE
     Dosage: UNK UNK, SINGLE
     Route: 042
     Dates: start: 20191119, end: 20191119

REACTIONS (3)
  - Product use in unapproved indication [Unknown]
  - Serum ferritin increased [Not Recovered/Not Resolved]
  - Iron overload [Unknown]

NARRATIVE: CASE EVENT DATE: 20191112
